FAERS Safety Report 6782292-7 (Version None)
Quarter: 2010Q2

REPORT INFORMATION
  Report Type: 
  Country: None (occurrence: None)
  Receive Date: 20100616
  Receipt Date: 20100616
  Transmission Date: 20101027
  Serious: Yes (Other)
  Sender: FDA-Public Use
  Company Number: 2010S1003742

PATIENT
  Age: 82 Year
  Sex: Male

DRUGS (2)
  1. PHOSPHOSODA FLAVOR NOT SPECIFIED [Suspect]
     Indication: COLONOSCOPY
  2. FLEET ENEMA (SODIUM PHOSPHATE) [Suspect]
     Indication: COLONOSCOPY
     Dosage: RTL
     Route: 054

REACTIONS (1)
  - RENAL IMPAIRMENT [None]
